FAERS Safety Report 24371613 (Version 2)
Quarter: 2024Q4

REPORT INFORMATION
  Report Type: Other
  Country: ES (occurrence: ES)
  Receive Date: 20240927
  Receipt Date: 20241007
  Transmission Date: 20250114
  Serious: Yes (Other)
  Sender: ALVOGEN
  Company Number: None

PATIENT
  Age: 28 Year
  Sex: Male

DRUGS (2)
  1. TERIPARATIDE [Suspect]
     Active Substance: TERIPARATIDE
     Indication: Hypoparathyroidism
     Dosage: 0.8 MCG/KG/DAY IN 3 DOSES (20-20-20 MCG
     Route: 058
     Dates: start: 202202
  2. TERIPARATIDE [Suspect]
     Active Substance: TERIPARATIDE
     Indication: Hypoparathyroidism
     Dosage: 20 MCG EVERY 12 HOURS
     Route: 058
     Dates: start: 202202

REACTIONS (2)
  - Drug resistance [Unknown]
  - Off label use [Unknown]
